FAERS Safety Report 18586275 (Version 1)
Quarter: 2020Q4

REPORT INFORMATION
  Report Type: Spontaneous
  Country: US (occurrence: US)
  Receive Date: 20201204
  Receipt Date: 20201204
  Transmission Date: 20210114
  Serious: Yes (Hospitalization)
  Sender: FDA-Public Use
  Company Number: None

PATIENT
  Age: 75 Year
  Sex: Male
  Weight: 95 kg

DRUGS (6)
  1. ETOPOSIDE (VP-16) [Suspect]
     Active Substance: ETOPOSIDE
     Dates: end: 20201113
  2. CYCLOPHOSPHAMIDE (26271) [Suspect]
     Active Substance: CYCLOPHOSPHAMIDE
     Dates: end: 20201115
  3. VINCRISTINE SULFATE. [Suspect]
     Active Substance: VINCRISTINE SULFATE
     Dates: end: 20201113
  4. RITUXIMAB (MOAB C2B8 ANTI CD20, CHIMERIC) [Suspect]
     Active Substance: RITUXIMAB
     Dates: end: 20201110
  5. DOXORUBICIN HYDROCHLORIDE. [Suspect]
     Active Substance: DOXORUBICIN HYDROCHLORIDE
     Dates: end: 20201113
  6. PREDNISONE. [Suspect]
     Active Substance: PREDNISONE
     Dates: end: 20201114

REACTIONS (7)
  - Diarrhoea [None]
  - Hypotension [None]
  - Hypomagnesaemia [None]
  - Thrombocytopenia [None]
  - Neutropenia [None]
  - Anaemia [None]
  - Hypokalaemia [None]

NARRATIVE: CASE EVENT DATE: 20201122
